FAERS Safety Report 6915246-8 (Version None)
Quarter: 2010Q3

REPORT INFORMATION
  Report Type: 
  Country: None (occurrence: None)
  Receive Date: 20100806
  Receipt Date: 20100806
  Transmission Date: 20110219
  Serious: Yes (Life-Threatening, Hospitalization, Disabling)
  Sender: FDA-Public Use
  Company Number: None

PATIENT
  Age: 62 Year
  Sex: Male
  Weight: 81.6475 kg

DRUGS (1)
  1. GLYBURIDE [Suspect]
     Indication: GLUCOSE TOLERANCE IMPAIRED
     Dosage: 2.5 MG 2 PER DAY PO
     Route: 048
     Dates: start: 20090601, end: 20100731

REACTIONS (4)
  - CONDITION AGGRAVATED [None]
  - DIABETES MELLITUS [None]
  - INJURY [None]
  - PANCREATIC DISORDER [None]
